FAERS Safety Report 8460178 (Version 3)
Quarter: 2012Q4

REPORT INFORMATION
  Report Type: 
  Country: US (occurrence: US)
  Receive Date: 20120315
  Receipt Date: 20120831
  Transmission Date: 20130627
  Serious: Yes (Hospitalization)
  Sender: FDA-Public Use
  Company Number: US-BAYER-2012-023744

PATIENT
  Age: 36 Year
  Sex: Female
  Weight: 131.52 kg

DRUGS (10)
  1. YASMIN [Suspect]
     Indication: CONTRACEPTION
     Dosage: UNK
     Route: 048
     Dates: start: 20050224, end: 200808
  2. YASMIN [Suspect]
     Indication: MENSTRUATION IRREGULAR
  3. LEVOTHYROXINE [Concomitant]
     Dosage: 200 mcg/24hr, UNK
     Route: 048
     Dates: start: 20080604
  4. LEVOXYL [Concomitant]
     Dosage: 0.2 mg, daily
     Dates: start: 20080827
  5. FUROSEMIDE [Concomitant]
     Dosage: 20 mg daily
     Route: 048
     Dates: start: 20080827
  6. MICRO-K [Concomitant]
     Dosage: 10 mEq, daily
     Route: 048
     Dates: start: 20080807
  7. ASPIRIN [Concomitant]
     Dosage: 81 mg daily
     Route: 048
     Dates: start: 20080827
  8. LASIX [Concomitant]
     Dosage: 20 mg daily
  9. SYNTHROID [Concomitant]
     Dosage: 200 mcg daily
  10. BABY ASPIRIN [Concomitant]

REACTIONS (4)
  - Pulmonary embolism [None]
  - Deep vein thrombosis [None]
  - Depression [None]
  - Anxiety [None]
